FAERS Safety Report 24080665 (Version 2)
Quarter: 2025Q1

REPORT INFORMATION
  Report Type: Other
  Country: US (occurrence: US)
  Receive Date: 20240711
  Receipt Date: 20250227
  Transmission Date: 20250409
  Serious: Yes (Other)
  Sender: TRAVERE THERAPEUTICS
  Company Number: US-TRAVERE-2024TVT00671

PATIENT
  Age: 38 Year
  Sex: Female

DRUGS (1)
  1. FILSPARI [Suspect]
     Active Substance: SPARSENTAN
     Indication: IgA nephropathy
     Route: 048

REACTIONS (5)
  - Syncope [Unknown]
  - Dizziness [Unknown]
  - Vertigo [Unknown]
  - Back pain [Unknown]
  - Influenza [Unknown]

NARRATIVE: CASE EVENT DATE: 20240601
